FAERS Safety Report 5307251-2 (Version None)
Quarter: 2007Q2

REPORT INFORMATION
  Report Type: 
  Country: None (occurrence: None)
  Receive Date: 20070425
  Receipt Date: 20070413
  Transmission Date: 20071010
  Serious: Yes (Other)
  Sender: FDA-Public Use
  Company Number: AU-GLAXOSMITHKLINE-B0452067A

PATIENT
  Age: 56 Year
  Sex: Female
  Weight: 119 kg

DRUGS (8)
  1. AVANDIA [Suspect]
     Indication: DIABETES MELLITUS
     Dosage: 8MG PER DAY
     Route: 048
  2. AVAPRO [Concomitant]
     Route: 065
  3. EFFEXOR XR [Concomitant]
     Route: 065
     Dates: start: 20041214
  4. DIAMICRON [Concomitant]
     Route: 065
  5. DIABEX [Concomitant]
  6. LIPEX [Concomitant]
  7. LITHIUM CARBONATE [Concomitant]
     Dates: start: 20060723
  8. PROGOUT [Concomitant]

REACTIONS (3)
  - ANAEMIA [None]
  - BLOOD IRON DECREASED [None]
  - HAEMOGLOBIN DECREASED [None]
